FAERS Safety Report 17961255 (Version 1)
Quarter: 2020Q2

REPORT INFORMATION
  Report Type: Spontaneous
  Country: US (occurrence: US)
  Receive Date: 20200629
  Receipt Date: 20200629
  Transmission Date: 20200714
  Serious: No
  Sender: FDA-Public Use
  Company Number: US-ROCHE-2347635

PATIENT
  Age: 66 Year
  Sex: Female

DRUGS (2)
  1. BENAZEPRIL [Concomitant]
     Active Substance: BENAZEPRIL HYDROCHLORIDE
  2. XELODA [Suspect]
     Active Substance: CAPECITABINE
     Indication: COLON CANCER
     Dosage: 4 TABLETS
     Route: 048
     Dates: start: 20190611

REACTIONS (6)
  - Thirst decreased [Unknown]
  - Rash erythematous [Unknown]
  - Nausea [Unknown]
  - Paraesthesia oral [Unknown]
  - Plantar erythema [Unknown]
  - Rash papular [Not Recovered/Not Resolved]

NARRATIVE: CASE EVENT DATE: 20190724
